FAERS Safety Report 23070468 (Version 2)
Quarter: 2023Q4

REPORT INFORMATION
  Report Type: Other
  Country: PK (occurrence: None)
  Receive Date: 20231016
  Receipt Date: 20231018
  Transmission Date: 20240109
  Serious: Yes (Death)
  Sender: FDA-Public Use
  Company Number: PK-ROCHE-3436536

PATIENT
  Age: 56 Year
  Sex: Male

DRUGS (2)
  1. TECENTRIQ [Suspect]
     Active Substance: ATEZOLIZUMAB
     Indication: Hepatocellular carcinoma
     Dosage: FOR 18 CYCLES WITH INTERVAL OF 3 WEEKLY
     Route: 041
     Dates: start: 20230830
  2. AVASTIN [Suspect]
     Active Substance: BEVACIZUMAB
     Indication: Hepatocellular carcinoma
     Dosage: FOR 18 CYCLES WITH INTERVAL OF 3 WEEKLY
     Route: 041
     Dates: start: 20230830

REACTIONS (1)
  - Hepatocellular carcinoma [Fatal]
